FAERS Safety Report 9840212 (Version 1)
Quarter: 2014Q1

REPORT INFORMATION
  Report Type: Spontaneous
  Country: CA (occurrence: CA)
  Receive Date: 20140124
  Receipt Date: 20140124
  Transmission Date: 20141002
  Serious: Yes (Hospitalization)
  Sender: FDA-Public Use
  Company Number: CA-JNJFOC-20140110193

PATIENT
  Age: 80 Year
  Sex: Male

DRUGS (6)
  1. XARELTO [Suspect]
     Indication: PRODUCT USED FOR UNKNOWN INDICATION
     Route: 048
  2. GLICLAZIDE [Concomitant]
     Route: 065
  3. RAMIPRIL [Concomitant]
     Route: 065
  4. ROSUVASTATIN [Concomitant]
     Route: 065
  5. ATENOLOL [Concomitant]
     Route: 065
  6. METFORMIN [Concomitant]
     Route: 065

REACTIONS (3)
  - Acute generalised exanthematous pustulosis [Recovered/Resolved]
  - Rash generalised [Recovered/Resolved]
  - Rash pruritic [Recovered/Resolved]
